FAERS Safety Report 24593930 (Version 1)
Quarter: 2024Q4

REPORT INFORMATION
  Report Type: Spontaneous
  Country: US (occurrence: None)
  Receive Date: 20241108
  Receipt Date: 20241108
  Transmission Date: 20250115
  Serious: Yes (Death)
  Sender: Public
  Company Number: None

PATIENT
  Age: 47 Year

DRUGS (3)
  1. TACROLIMUS [Suspect]
     Active Substance: TACROLIMUS
     Indication: Renal transplant
     Dosage: 5 MG BID ORAL
     Route: 048
     Dates: start: 20230728, end: 20241025
  2. MYCOPHENOLIC ACID [Suspect]
     Active Substance: MYCOPHENOLIC ACID
     Indication: Renal transplant
     Dosage: 720 MG BID ORAL?
     Route: 048
     Dates: start: 20230728, end: 20241025
  3. CINACALCET [Concomitant]
     Active Substance: CINACALCET

REACTIONS (1)
  - Death [None]

NARRATIVE: CASE EVENT DATE: 20241025
